FAERS Safety Report 21514478 (Version 1)
Quarter: 2022Q4

REPORT INFORMATION
  Report Type: Spontaneous
  Country: US (occurrence: US)
  Receive Date: 20221027
  Receipt Date: 20221027
  Transmission Date: 20230112
  Serious: No
  Sender: FDA-Public Use
  Company Number: US-MYLANLABS-2022M1113796

PATIENT
  Age: 59 Year
  Sex: Female
  Weight: 59.87 kg

DRUGS (1)
  1. ESTRADIOL [Suspect]
     Active Substance: ESTRADIOL
     Indication: Product used for unknown indication
     Dosage: 1 GRAM, BIWEEKLY (STARTED AROUND APR-2022)
     Route: 067

REACTIONS (2)
  - Malabsorption from application site [Unknown]
  - Product container issue [Unknown]
